FAERS Safety Report 6209021-X (Version None)
Quarter: 2009Q2

REPORT INFORMATION
  Report Type: 
  Country: None (occurrence: None)
  Receive Date: 20090529
  Receipt Date: 20090521
  Transmission Date: 20091009
  Serious: Yes (Other)
  Sender: FDA-Public Use
  Company Number: PHHY2008MX22110

PATIENT
  Age: 59 Year
  Sex: Female

DRUGS (2)
  1. EXFORGE [Suspect]
     Indication: HYPERTENSION
     Dosage: 1 DF, QD
     Route: 048
     Dates: start: 20080821, end: 20080920
  2. LIPITOR [Concomitant]

REACTIONS (4)
  - DRUG TOXICITY [None]
  - OEDEMA PERIPHERAL [None]
  - PRURITUS [None]
  - SKIN DISCOLOURATION [None]
